FAERS Safety Report 10425434 (Version 1)
Quarter: 2014Q3

REPORT INFORMATION
  Report Type: Spontaneous
  Country: US (occurrence: US)
  Receive Date: 20140902
  Receipt Date: 20140902
  Transmission Date: 20150326
  Serious: No
  Sender: FDA-Public Use
  Company Number: US-009507513-1408USA014805

PATIENT

DRUGS (1)
  1. INTERFERON ALFA-2B [Suspect]
     Active Substance: INTERFERON ALFA-2B
     Indication: NEOPLASM MALIGNANT
     Route: 047

REACTIONS (4)
  - Incorrect route of drug administration [Unknown]
  - No adverse event [Unknown]
  - Product tampering [Unknown]
  - Off label use [Unknown]
